FAERS Safety Report 6391250-6 (Version None)
Quarter: 2009Q4

REPORT INFORMATION
  Report Type: 
  Country: None (occurrence: None)
  Receive Date: 20091005
  Receipt Date: 20090928
  Transmission Date: 20100525
  Serious: Yes (Other)
  Sender: FDA-Public Use
  Company Number: 0909-SPO-SPLN-0129

PATIENT
  Age: 8 Year
  Sex: Female

DRUGS (1)
  1. SUPPRELIN LA [Suspect]
     Indication: PRECOCIOUS PUBERTY
     Dosage: 1 IN 1 Y, SUB Q. IMPLANT
     Dates: start: 20081117

REACTIONS (2)
  - DEVICE EXPULSION [None]
  - UPPER LIMB FRACTURE [None]
